FAERS Safety Report 12955933 (Version 3)
Quarter: 2019Q1

REPORT INFORMATION
  Report Type: Spontaneous
  Country: JP (occurrence: JP)
  Receive Date: 20161118
  Receipt Date: 20190215
  Transmission Date: 20190417
  Serious: Yes (Death, Hospitalization, Other)
  Sender: FDA-Public Use
  Company Number: JP-GLAXOSMITHKLINE-JP2016JPN168026

PATIENT
  Age: 78 Year
  Sex: Female
  Weight: 53 kg

DRUGS (14)
  1. VALTREX [Suspect]
     Active Substance: VALACYCLOVIR HYDROCHLORIDE
     Indication: ANTIVIRAL PROPHYLAXIS
     Dosage: UNK, QOD
     Route: 048
     Dates: start: 201403
  2. VALTREX [Suspect]
     Active Substance: VALACYCLOVIR HYDROCHLORIDE
     Dosage: 500 MG, QD
     Route: 048
     Dates: start: 20120709
  3. VALTREX [Suspect]
     Active Substance: VALACYCLOVIR HYDROCHLORIDE
     Dosage: UNK
     Route: 048
  4. PREDNISOLONE. [Concomitant]
     Active Substance: PREDNISOLONE
     Indication: INTERSTITIAL LUNG DISEASE
     Dosage: UNK
     Route: 048
     Dates: start: 20150403, end: 201605
  5. VALTREX [Suspect]
     Active Substance: VALACYCLOVIR HYDROCHLORIDE
     Indication: HERPES SIMPLEX
     Dosage: 500 MG, BID
     Route: 048
     Dates: start: 20120209, end: 201202
  6. VALTREX [Suspect]
     Active Substance: VALACYCLOVIR HYDROCHLORIDE
     Dosage: 1000 MG, BID
     Route: 048
     Dates: start: 20120501, end: 201205
  7. LANDSEN [Concomitant]
     Active Substance: CLONAZEPAM
     Dosage: 2 MG, QD
  8. VALTREX [Suspect]
     Active Substance: VALACYCLOVIR HYDROCHLORIDE
     Dosage: 1000 MG, BID
     Route: 048
     Dates: start: 20120618, end: 201206
  9. VALTREX [Suspect]
     Active Substance: VALACYCLOVIR HYDROCHLORIDE
     Dosage: 500 MG, QD
     Route: 048
     Dates: start: 20150326, end: 20150329
  10. TAKEPRON OD TABLETS [Concomitant]
     Dosage: 15 MG, QD
     Route: 048
  11. CONSTAN [Concomitant]
     Active Substance: ALPRAZOLAM
     Dosage: UNK
  12. TRYPTANOL [Concomitant]
     Active Substance: AMITRIPTYLINE
     Dosage: 10 MG, QD
  13. EPADEL S [Concomitant]
     Active Substance: ICOSAPENT ETHYL
     Dosage: 900 MG, TID
  14. FOSAMAC [Concomitant]
     Active Substance: ALENDRONATE SODIUM
     Dosage: 35 MG, WE

REACTIONS (9)
  - Product use issue [Unknown]
  - Pyrexia [Unknown]
  - Therapy cessation [Unknown]
  - Product use issue [Unknown]
  - Product dose omission [Unknown]
  - Interstitial lung disease [Fatal]
  - Dyspnoea [Unknown]
  - Herpes simplex [Unknown]
  - Prescribed overdose [Unknown]

NARRATIVE: CASE EVENT DATE: 201203
